FAERS Safety Report 21405832 (Version 1)
Quarter: 2022Q4

REPORT INFORMATION
  Report Type: Spontaneous
  Country: US (occurrence: US)
  Receive Date: 20221004
  Receipt Date: 20221004
  Transmission Date: 20230112
  Serious: No
  Sender: FDA-Public Use
  Company Number: US-BION-010105

PATIENT
  Sex: Female

DRUGS (1)
  1. ANTI DIARRHEAL [Suspect]
     Active Substance: LOPERAMIDE HYDROCHLORIDE
     Indication: Product used for unknown indication
     Dosage: STRENGTH: 2MG, TOOK 2 ON SATURDAY

REACTIONS (1)
  - Expired product administered [Not Recovered/Not Resolved]
